FAERS Safety Report 7458925-9 (Version None)
Quarter: 2011Q2

REPORT INFORMATION
  Report Type: 
  Country: None (occurrence: None)
  Receive Date: 20110504
  Receipt Date: 20110502
  Transmission Date: 20111010
  Serious: Yes (Other)
  Sender: FDA-Public Use
  Company Number: FR-ABBOTT-11P-056-0722767-00

PATIENT
  Sex: Male

DRUGS (3)
  1. CEFTRIAXONE PANPHARMA [Suspect]
     Indication: LUNG DISORDER
     Route: 042
     Dates: start: 20110416, end: 20110420
  2. AERIUS [Concomitant]
     Indication: PRODUCT USED FOR UNKNOWN INDICATION
  3. ZECLAR INJECTION [Suspect]
     Indication: LUNG DISORDER
     Route: 042
     Dates: start: 20110416, end: 20110420

REACTIONS (1)
  - GENERALISED ERYTHEMA [None]
